FAERS Safety Report 14128522 (Version 1)
Quarter: 2017Q4

REPORT INFORMATION
  Report Type: Spontaneous
  Country: TW (occurrence: TW)
  Receive Date: 20171026
  Receipt Date: 20171026
  Transmission Date: 20180321
  Serious: Yes (Hospitalization)
  Sender: FDA-Public Use
  Company Number: TW-AMGEN-TWNSP2017160511

PATIENT
  Age: 71 Year
  Sex: Female

DRUGS (1)
  1. PROLIA [Suspect]
     Active Substance: DENOSUMAB
     Indication: OSTEOPOROSIS
     Dosage: UNK, Q6MO
     Route: 065
     Dates: start: 201503

REACTIONS (12)
  - Peripheral swelling [Unknown]
  - Erythema [Unknown]
  - Pyrexia [Unknown]
  - Lymphadenopathy [Unknown]
  - Back pain [Unknown]
  - Pain [Unknown]
  - Pain in extremity [Unknown]
  - Painful respiration [Unknown]
  - Neck pain [Unknown]
  - Renal disorder [Unknown]
  - Musculoskeletal stiffness [Unknown]
  - Musculoskeletal pain [Unknown]
